FAERS Safety Report 9496714 (Version 1)
Quarter: 2013Q3

REPORT INFORMATION
  Report Type: Spontaneous
  Country: US (occurrence: US)
  Receive Date: 20130904
  Receipt Date: 20130904
  Transmission Date: 20140515
  Serious: Yes (Hospitalization)
  Sender: FDA-Public Use
  Company Number: US-BAYER-2013-106534

PATIENT
  Age: 59 Year
  Sex: Male
  Weight: 107.48 kg

DRUGS (4)
  1. PHILLIPS^ MILK OF MAGNESIA [Suspect]
     Indication: CONSTIPATION
     Dosage: 4 TBSP, QD
     Route: 048
     Dates: start: 20130825, end: 20130826
  2. PHILLIPS^ MILK OF MAGNESIA [Suspect]
     Indication: CONSTIPATION
     Dosage: 4 TBSP, QD
     Route: 048
     Dates: start: 20130830
  3. METHADONE [Concomitant]
  4. OXYCONTIN [Concomitant]

REACTIONS (2)
  - Muscle spasms [Not Recovered/Not Resolved]
  - Drug ineffective [None]
